FAERS Safety Report 8824007 (Version 1)
Quarter: 2012Q4

REPORT INFORMATION
  Report Type: Report from Study
  Country: ES (occurrence: ES)
  Receive Date: 20121003
  Receipt Date: 20121003
  Transmission Date: 20130627
  Serious: Yes (Hospitalization)
  Sender: FDA-Public Use
  Company Number: ES-BAXTER-2012BAX018245

PATIENT
  Age: 54 Year
  Sex: Female
  Weight: 56.8 kg

DRUGS (19)
  1. GENOXAL [Suspect]
     Indication: DIFFUSE LARGE B-CELL LYMPHOMA
     Route: 042
     Dates: start: 20120420
  2. GENOXAL [Suspect]
     Route: 042
     Dates: start: 20120802
  3. DOXORUBICIN [Suspect]
     Indication: DIFFUSE LARGE B-CELL LYMPHOMA
     Route: 042
     Dates: start: 20120420
  4. DOXORUBICIN [Suspect]
     Route: 042
     Dates: start: 20120802
  5. VINCRISTINE [Suspect]
     Indication: DIFFUSE LARGE B-CELL LYMPHOMA
     Route: 042
     Dates: start: 20120420
  6. VINCRISTINE [Suspect]
     Route: 042
     Dates: start: 20120802
  7. PREDNISONE [Suspect]
     Indication: DIFFUSE LARGE B-CELL LYMPHOMA
     Route: 048
     Dates: start: 20120420
  8. PREDNISONE [Suspect]
     Route: 048
     Dates: start: 20120806
  9. LEFLUNOMIDE [Concomitant]
     Indication: ARTHRITIS
     Route: 065
  10. LORAZEPAM [Concomitant]
     Indication: ANXIETY
     Route: 065
  11. PAROXETINE [Concomitant]
     Indication: ANXIETY
     Route: 065
  12. ACECLOFENAC [Concomitant]
     Indication: ARTHRITIS
     Route: 065
  13. OMEPRAZOLE [Concomitant]
     Indication: DRUG USE FOR UNKNOWN INDICATION
     Route: 065
  14. METOCLOPRAMIDE [Concomitant]
     Indication: VOMITING
     Route: 065
     Dates: start: 20120420
  15. ONDANSETRON [Concomitant]
     Indication: PREMEDICATION
     Route: 065
     Dates: start: 20120420, end: 20120802
  16. LEVOFLOXACIN [Concomitant]
     Indication: RESPIRATORY INFECTION
     Route: 065
     Dates: start: 20120801
  17. PARACETAMOL [Concomitant]
     Indication: PREMEDICATION
     Route: 065
     Dates: start: 20120420
  18. DEXCHLORPHENIRAMINE MALEATE [Concomitant]
     Indication: PREMEDICATION
     Route: 065
     Dates: start: 20120420
  19. PREDNISONE [Concomitant]
     Indication: ARTHRITIS
     Route: 065

REACTIONS (2)
  - Tracheitis [Recovered/Resolved]
  - Febrile neutropenia [Recovered/Resolved]
